FAERS Safety Report 6173718-0 (Version None)
Quarter: 2009Q2

REPORT INFORMATION
  Report Type: 
  Country: None (occurrence: None)
  Receive Date: 20090430
  Receipt Date: 20090422
  Transmission Date: 20091009
  Serious: Yes (Other)
  Sender: FDA-Public Use
  Company Number: PHHY2009FR15520

PATIENT
  Age: 53 Year
  Sex: Female

DRUGS (2)
  1. ACLASTA [Suspect]
     Dosage: 5 MG
     Route: 042
     Dates: start: 20080601
  2. EVISTA [Concomitant]
     Indication: PREMATURE MENOPAUSE

REACTIONS (4)
  - BACK PAIN [None]
  - INFLUENZA LIKE ILLNESS [None]
  - INTERVERTEBRAL DISC COMPRESSION [None]
  - SURGERY [None]
